FAERS Safety Report 9520217 (Version 4)
Quarter: 2013Q3

REPORT INFORMATION
  Report Type: Report from Study
  Country: DE (occurrence: DE)
  Receive Date: 20130912
  Receipt Date: 20130923
  Transmission Date: 20140515
  Serious: Yes (Hospitalization)
  Sender: FDA-Public Use
  Company Number: DE-ROCHE-1252746

PATIENT
  Sex: Female

DRUGS (9)
  1. RITUXIMAB [Suspect]
     Indication: B-CELL LYMPHOMA
     Dosage: MOST RECENTY DOSE PRIOR TO SAE 06/JUN/2013
     Route: 042
     Dates: start: 20130311
  2. PEGFILGRASTIM [Suspect]
     Indication: B-CELL LYMPHOMA
     Route: 058
     Dates: start: 20130313, end: 20130524
  3. PREDNISOLONE [Suspect]
     Indication: B-CELL LYMPHOMA
     Route: 048
     Dates: start: 20130306, end: 20130527
  4. VINCRISTINE [Suspect]
     Indication: B-CELL LYMPHOMA
     Route: 042
     Dates: start: 20130312, end: 20130523
  5. CYCLOPHOSPHAMIDE [Suspect]
     Indication: B-CELL LYMPHOMA
     Route: 042
     Dates: start: 20130312, end: 20130523
  6. DOXORUBICIN [Suspect]
     Indication: B-CELL LYMPHOMA
     Route: 042
     Dates: start: 20130312, end: 20130523
  7. SULFAMETHOXAZOLE/TRIMETHOPRIM [Concomitant]
     Route: 048
  8. ACICLOVIR [Concomitant]
     Route: 048
  9. THIAMAZOL [Concomitant]
     Route: 048

REACTIONS (2)
  - Vision blurred [Recovered/Resolved]
  - Extraocular muscle paresis [Recovered/Resolved]
